FAERS Safety Report 17887619 (Version 3)
Quarter: 2020Q3

REPORT INFORMATION
  Report Type: Report from Study
  Country: CZ (occurrence: CZ)
  Receive Date: 20200611
  Receipt Date: 20200702
  Transmission Date: 20201103
  Serious: Yes (Hospitalization, Other)
  Sender: FDA-Public Use
  Company Number: CZ-BRISTOL-MYERS SQUIBB COMPANY-BMS-2020-046088

PATIENT
  Age: 66 Year
  Sex: Female
  Weight: 78 kg

DRUGS (13)
  1. RUCAPARIB [Suspect]
     Active Substance: RUCAPARIB
     Indication: OVARIAN CANCER
     Dosage: 600 MILLIGRAM, BID
     Route: 048
     Dates: start: 20200423
  2. HYLAK [FERRIC CITRATE;LACTOSE ANHYDROUS;MANGANESE CITRATE;POTASSIUM PH [Concomitant]
     Indication: PRODUCT USED FOR UNKNOWN INDICATION
     Dosage: UNK
     Route: 065
     Dates: start: 20200507
  3. BISULEPIN [Concomitant]
     Active Substance: BISULEPIN
     Indication: RASH
     Dosage: UNK
     Route: 065
     Dates: start: 20200610
  4. SERETIDE [Concomitant]
     Active Substance: FLUTICASONE PROPIONATE\SALMETEROL XINAFOATE
     Indication: PRODUCT USED FOR UNKNOWN INDICATION
     Dosage: UNK
     Dates: start: 20200420
  5. MICARDIS [Concomitant]
     Active Substance: TELMISARTAN
     Indication: PRODUCT USED FOR UNKNOWN INDICATION
     Dosage: UNK
     Route: 065
     Dates: start: 2012
  6. ATARALGIN [Concomitant]
     Active Substance: ACETAMINOPHEN\CAFFEINE\GUAIFENESIN
     Indication: HEADACHE
     Dosage: UNK
     Route: 065
     Dates: start: 20200522, end: 20200601
  7. HYDROCORTISONE. [Concomitant]
     Active Substance: HYDROCORTISONE
     Indication: RASH
     Dosage: UNK
     Route: 042
     Dates: start: 20200610
  8. HYDROCORTISONE. [Concomitant]
     Active Substance: HYDROCORTISONE
     Indication: PRURITUS
  9. NEURITOGEN [Concomitant]
     Active Substance: DIETARY SUPPLEMENT\HERBALS
     Indication: PRODUCT USED FOR UNKNOWN INDICATION
     Dosage: UNK
     Route: 065
     Dates: start: 2019
  10. NIVOLUMAB [Suspect]
     Active Substance: NIVOLUMAB
     Indication: OVARIAN CANCER
     Dosage: 480 MILLIGRAM, Q4WK
     Route: 042
     Dates: start: 20200521
  11. SMECTA [Concomitant]
     Active Substance: MONTMORILLONITE
     Indication: PRODUCT USED FOR UNKNOWN INDICATION
     Dosage: UNK
     Route: 065
     Dates: start: 20200507
  12. PARACETAMOL [Concomitant]
     Active Substance: ACETAMINOPHEN
     Indication: PYREXIA
     Dosage: UNK
     Route: 065
     Dates: start: 20200521, end: 20200601
  13. BISULEPIN [Concomitant]
     Active Substance: BISULEPIN
     Indication: PRURITUS

REACTIONS (1)
  - Febrile neutropenia [Recovering/Resolving]

NARRATIVE: CASE EVENT DATE: 20200601
